FAERS Safety Report 18628896 (Version 1)
Quarter: 2020Q4

REPORT INFORMATION
  Report Type: Spontaneous
  Country: FR (occurrence: FR)
  Receive Date: 20201217
  Receipt Date: 20201217
  Transmission Date: 20210114
  Serious: Yes (Hospitalization, Other)
  Sender: FDA-Public Use
  Company Number: FR-009507513-2012FRA006790

PATIENT
  Age: 62 Year
  Sex: Female

DRUGS (3)
  1. SOFOSBUVIR [Suspect]
     Active Substance: SOFOSBUVIR
     Dosage: UNK
     Dates: start: 20150922, end: 20160314
  2. RIBAVIRIN. [Suspect]
     Active Substance: RIBAVIRIN
     Dosage: UNK
     Route: 048
     Dates: start: 20150922, end: 20160314
  3. DAKLINZA [Suspect]
     Active Substance: DACLATASVIR
     Dosage: UNK
     Dates: start: 20150922, end: 20160314

REACTIONS (4)
  - Ascites [Unknown]
  - Oedema due to hepatic disease [Unknown]
  - Right ventricular failure [Recovering/Resolving]
  - Hepatic cirrhosis [Unknown]

NARRATIVE: CASE EVENT DATE: 202004
